FAERS Safety Report 4697416-5 (Version None)
Quarter: 2005Q2

REPORT INFORMATION
  Report Type: 
  Country: None (occurrence: None)
  Receive Date: 20050622
  Receipt Date: 20050513
  Transmission Date: 20051028
  Serious: Yes (Disabling, Congenital Anomaly)
  Sender: FDA-Public Use
  Company Number: DE-ABBOTT-05P-062-0300673-00

PATIENT
  Sex: Female

DRUGS (2)
  1. KLACID PRO [Suspect]
     Indication: DRUG EXPOSURE DURING PREGNANCY
     Route: 048
     Dates: start: 20050210, end: 20050212
  2. ROXITHROMYCIN [Suspect]
     Indication: DRUG EXPOSURE DURING PREGNANCY
     Dosage: 2X1/2 TABLET EACH DAY
     Route: 048
     Dates: start: 20040216, end: 20040218

REACTIONS (2)
  - DEAFNESS CONGENITAL [None]
  - DEAFNESS NEUROSENSORY [None]
